FAERS Safety Report 18741310 (Version 1)
Quarter: 2021Q1

REPORT INFORMATION
  Report Type: Report from Study
  Country: IT (occurrence: IT)
  Receive Date: 20210114
  Receipt Date: 20210114
  Transmission Date: 20210419
  Serious: Yes (Other)
  Sender: FDA-Public Use
  Company Number: IT-PFIZER INC-2020521166

PATIENT
  Age: 71 Year
  Sex: Female

DRUGS (2)
  1. DOXORUBICIN HCL [Suspect]
     Active Substance: DOXORUBICIN HYDROCHLORIDE
     Indication: OVARIAN CANCER
     Dosage: 70 MG/M^2, CYCLIC ( ON DAY 1 EVERY 3 WEEKS)
     Route: 042
     Dates: start: 198303, end: 198310
  2. CYCLOPHOSPHAMIDE. [Suspect]
     Active Substance: CYCLOPHOSPHAMIDE
     Dosage: 1400 MG/M2, CYCLIC (ON DAY 1 EVERY 3 WEEKS)
     Route: 042

REACTIONS (4)
  - Conjunctivitis [Unknown]
  - Leukopenia [Unknown]
  - Thrombocytopenia [Unknown]
  - Corneal defect [Unknown]
